FAERS Safety Report 5117036-8 (Version None)
Quarter: 2006Q3

REPORT INFORMATION
  Report Type: 
  Country: None (occurrence: None)
  Receive Date: 20060925
  Receipt Date: 20060912
  Transmission Date: 20061208
  Serious: Yes (Other)
  Sender: FDA-Public Use
  Company Number: 2006104831

PATIENT
  Age: 80 Year
  Sex: Male

DRUGS (2)
  1. ZYVOX [Suspect]
     Indication: PNEUMONIA STAPHYLOCOCCAL
     Dosage: 1200 MG (600 MG, 2 IN 1 D), ORAL
     Route: 048
     Dates: start: 20060823, end: 20060910
  2. NSAID'S (NSAID'S) [Concomitant]

REACTIONS (1)
  - HYPERTENSION [None]
